FAERS Safety Report 4567044-0 (Version None)
Quarter: 2005Q1

REPORT INFORMATION
  Report Type: 
  Country: None (occurrence: None)
  Receive Date: 20050201
  Receipt Date: 20041208
  Transmission Date: 20050727
  Serious: Yes (Other)
  Sender: FDA-Public Use
  Company Number: US-BRISTOL-MYERS SQUIBB COMPANY-12789442

PATIENT
  Sex: Female

DRUGS (8)
  1. STADOL [Suspect]
     Route: 045
     Dates: start: 20000418
  2. PAXIL CR [Concomitant]
  3. ACETAMINOPHEN + HYDROCODONE [Concomitant]
  4. RELAFEN [Concomitant]
  5. SKELAXIN [Concomitant]
  6. HYDROXYZINE [Concomitant]
  7. PROPOXYPHENE [Concomitant]
  8. ASPIRIN + CAFFEINE + BUTALBITAL [Concomitant]

REACTIONS (1)
  - DEPENDENCE [None]
